FAERS Safety Report 17501508 (Version 1)
Quarter: 2020Q1

REPORT INFORMATION
  Report Type: Report from Study
  Country: US (occurrence: US)
  Receive Date: 20200305
  Receipt Date: 20200305
  Transmission Date: 20200409
  Serious: Yes (Hospitalization)
  Sender: FDA-Public Use
  Company Number: US-MYLANLABS-2020M1025185

PATIENT
  Sex: Male

DRUGS (4)
  1. METHOTREXATE. [Concomitant]
     Active Substance: METHOTREXATE
     Indication: NEUROCYSTICERCOSIS
     Route: 065
     Dates: start: 20091005, end: 201308
  2. DEXAMETHASONE. [Suspect]
     Active Substance: DEXAMETHASONE
     Indication: NEUROCYSTICERCOSIS
     Route: 065
     Dates: start: 20091005, end: 201003
  3. PRAZIQUANTEL. [Concomitant]
     Active Substance: PRAZIQUANTEL
     Indication: NEUROCYSTICERCOSIS
     Route: 065
     Dates: start: 20100330, end: 201007
  4. ALBENDAZOLE. [Concomitant]
     Active Substance: ALBENDAZOLE
     Indication: NEUROCYSTICERCOSIS
     Route: 065
     Dates: end: 20100115

REACTIONS (5)
  - Pulmonary embolism [Unknown]
  - Weight increased [Unknown]
  - Oedema peripheral [Unknown]
  - Osteonecrosis [Unknown]
  - Steroid diabetes [Unknown]
